FAERS Safety Report 25372302 (Version 1)
Quarter: 2025Q2

REPORT INFORMATION
  Report Type: Report from Study
  Country: CO (occurrence: CO)
  Receive Date: 20250529
  Receipt Date: 20250529
  Transmission Date: 20250716
  Serious: Yes (Death, Other)
  Sender: UCB
  Company Number: CO-UCBSA-2025031568

PATIENT
  Age: 67 Year
  Sex: Male

DRUGS (6)
  1. ROTIGOTINE [Suspect]
     Active Substance: ROTIGOTINE
     Indication: Parkinson^s disease
     Dosage: 2 MILLIGRAM, ONCE DAILY (QD)
     Route: 062
     Dates: start: 20210218, end: 20210224
  2. ROTIGOTINE [Suspect]
     Active Substance: ROTIGOTINE
     Dosage: 4 MILLIGRAM, ONCE DAILY (QD)
     Route: 062
     Dates: start: 20210225, end: 20210308
  3. ROTIGOTINE [Suspect]
     Active Substance: ROTIGOTINE
     Dosage: 6 MILLIGRAM, ONCE DAILY (QD)
     Route: 062
     Dates: start: 20210309, end: 20210815
  4. ROTIGOTINE [Suspect]
     Active Substance: ROTIGOTINE
     Dosage: 12 MILLIGRAM, ONCE DAILY (QD)
     Route: 062
     Dates: start: 20221219, end: 20240404
  5. ROTIGOTINE [Suspect]
     Active Substance: ROTIGOTINE
     Dosage: 8 MILLIGRAM, ONCE DAILY (QD)
     Route: 062
     Dates: start: 20210816, end: 20221218
  6. ROTIGOTINE [Suspect]
     Active Substance: ROTIGOTINE
     Dosage: 14 MILLIGRAM, ONCE DAILY (QD)
     Route: 062
     Dates: start: 20240405, end: 20250212

REACTIONS (2)
  - Cerebral infarction [Fatal]
  - Off label use [Unknown]

NARRATIVE: CASE EVENT DATE: 20210218
